FAERS Safety Report 16965641 (Version 2)
Quarter: 2019Q4

REPORT INFORMATION
  Report Type: Report from Study
  Country: CO (occurrence: CO)
  Receive Date: 20191028
  Receipt Date: 20191105
  Transmission Date: 20200122
  Serious: Yes (Death, Hospitalization)
  Sender: FDA-Public Use
  Company Number: PHHY2019CO224638

PATIENT
  Age: 29 Year
  Sex: Female

DRUGS (1)
  1. REVOLADE [Suspect]
     Active Substance: ELTROMBOPAG
     Indication: APLASTIC ANAEMIA
     Dosage: 150 MG, QD
     Route: 048
     Dates: start: 20190918

REACTIONS (5)
  - Death [Fatal]
  - Vomiting [Unknown]
  - Aplastic anaemia [Unknown]
  - Condition aggravated [Unknown]
  - Pyrexia [Unknown]

NARRATIVE: CASE EVENT DATE: 20191014
